FAERS Safety Report 7332939-1 (Version None)
Quarter: 2011Q1

REPORT INFORMATION
  Report Type: 
  Country: None (occurrence: None)
  Receive Date: 20110304
  Receipt Date: 20110222
  Transmission Date: 20110831
  Serious: Yes (Other)
  Sender: FDA-Public Use
  Company Number: PHHY2011CA14681

PATIENT
  Age: 18 Year
  Sex: Female

DRUGS (1)
  1. MEDROXYPROGESTERONE SANDOZ [Suspect]
     Dosage: UNK
     Dates: start: 20070101

REACTIONS (2)
  - MALAISE [None]
  - VOMITING [None]
